FAERS Safety Report 7434803-6 (Version None)
Quarter: 2011Q2

REPORT INFORMATION
  Report Type: 
  Country: None (occurrence: None)
  Receive Date: 20110425
  Receipt Date: 20110421
  Transmission Date: 20111010
  Serious: Yes (Hospitalization, Other)
  Sender: FDA-Public Use
  Company Number: DE-ABBOTT-11P-062-0706624-00

PATIENT
  Sex: Female

DRUGS (3)
  1. HUMIRA [Suspect]
     Indication: ANKYLOSING SPONDYLITIS
     Route: 058
     Dates: start: 20110113, end: 20110204
  2. FENISTIL [Concomitant]
     Indication: PRODUCT USED FOR UNKNOWN INDICATION
     Route: 048
  3. TRAMADOL HCL [Concomitant]
     Indication: PRODUCT USED FOR UNKNOWN INDICATION
     Route: 048

REACTIONS (11)
  - OSTEOARTHRITIS [None]
  - FURUNCLE [None]
  - CHEST PAIN [None]
  - EYE PAIN [None]
  - SKIN DISORDER [None]
  - HERPES ZOSTER [None]
  - RASH [None]
  - DRUG INEFFECTIVE [None]
  - KNEE OPERATION [None]
  - BONE PAIN [None]
  - MENISCUS LESION [None]
